FAERS Safety Report 23992917 (Version 3)
Quarter: 2025Q3

REPORT INFORMATION
  Report Type: Spontaneous
  Country: CA (occurrence: CA)
  Receive Date: 20240620
  Receipt Date: 20250807
  Transmission Date: 20251020
  Serious: Yes (Other)
  Sender: Haleon PLC
  Company Number: CA-HALEON-2175370

PATIENT
  Age: 72 Year
  Sex: Male

DRUGS (75)
  1. VOLTAREN [Suspect]
     Active Substance: DICLOFENAC SODIUM
     Indication: Product used for unknown indication
  2. VOLTAREN [Suspect]
     Active Substance: DICLOFENAC SODIUM
     Dosage: 1 EVERY .5 DAYS
  3. VOLTAREN [Suspect]
     Active Substance: DICLOFENAC SODIUM
     Dosage: 1 EVERY 1 DAYS; 2.0 MONTHS
  4. VOLTAREN [Suspect]
     Active Substance: DICLOFENAC SODIUM
     Dosage: 2 DOSAGE FORM, QD
     Route: 050
  5. DEXILANT [Concomitant]
     Active Substance: DEXLANSOPRAZOLE
     Indication: Product used for unknown indication
  6. DEXILANT [Concomitant]
     Active Substance: DEXLANSOPRAZOLE
  7. DEXILANT [Concomitant]
     Active Substance: DEXLANSOPRAZOLE
  8. DEXILANT [Concomitant]
     Active Substance: DEXLANSOPRAZOLE
  9. DEXILANT [Concomitant]
     Active Substance: DEXLANSOPRAZOLE
     Route: 050
  10. DILAUDID [Concomitant]
     Active Substance: HYDROMORPHONE HYDROCHLORIDE
     Indication: Product used for unknown indication
  11. DILAUDID [Concomitant]
     Active Substance: HYDROMORPHONE HYDROCHLORIDE
  12. DILAUDID [Concomitant]
     Active Substance: HYDROMORPHONE HYDROCHLORIDE
  13. DILAUDID [Concomitant]
     Active Substance: HYDROMORPHONE HYDROCHLORIDE
  14. DILAUDID [Concomitant]
     Active Substance: HYDROMORPHONE HYDROCHLORIDE
  15. DILAUDID [Concomitant]
     Active Substance: HYDROMORPHONE HYDROCHLORIDE
  16. FENTANYL CITRATE [Suspect]
     Active Substance: FENTANYL CITRATE
     Indication: Product used for unknown indication
  17. FENTANYL CITRATE [Suspect]
     Active Substance: FENTANYL CITRATE
  18. ARTHROTEC [Concomitant]
     Active Substance: DICLOFENAC SODIUM\MISOPROSTOL
     Indication: Product used for unknown indication
     Dosage: 1 EVERY .5 DAYS
  19. COSENTYX [Suspect]
     Active Substance: SECUKINUMAB
     Indication: Ankylosing spondylitis
  20. COSENTYX [Suspect]
     Active Substance: SECUKINUMAB
     Route: 058
  21. COSENTYX [Suspect]
     Active Substance: SECUKINUMAB
     Route: 058
  22. COSENTYX [Suspect]
     Active Substance: SECUKINUMAB
     Dosage: 1 EVERY 1 WEEKS
     Route: 058
  23. COSENTYX [Suspect]
     Active Substance: SECUKINUMAB
  24. COSENTYX [Suspect]
     Active Substance: SECUKINUMAB
     Dosage: 1 EVERY 1 MONTHS
     Route: 058
  25. COSENTYX [Suspect]
     Active Substance: SECUKINUMAB
     Route: 058
  26. HUMIRA [Concomitant]
     Active Substance: ADALIMUMAB
     Indication: Product used for unknown indication
     Route: 050
  27. HUMIRA [Concomitant]
     Active Substance: ADALIMUMAB
     Route: 058
  28. HUMIRA [Concomitant]
     Active Substance: ADALIMUMAB
     Route: 058
  29. LANSOPRAZOLE [Suspect]
     Active Substance: LANSOPRAZOLE
     Indication: Product used for unknown indication
  30. LANSOPRAZOLE [Suspect]
     Active Substance: LANSOPRAZOLE
  31. LANSOPRAZOLE [Suspect]
     Active Substance: LANSOPRAZOLE
  32. LANSOPRAZOLE [Suspect]
     Active Substance: LANSOPRAZOLE
  33. LANSOPRAZOLE [Suspect]
     Active Substance: LANSOPRAZOLE
  34. MORPHINE SULFATE [Concomitant]
     Active Substance: MORPHINE SULFATE
     Indication: Product used for unknown indication
     Route: 050
  35. MORPHINE SULFATE [Concomitant]
     Active Substance: MORPHINE SULFATE
  36. MORPHINE SULFATE [Concomitant]
     Active Substance: MORPHINE SULFATE
  37. MORPHINE SULFATE [Concomitant]
     Active Substance: MORPHINE SULFATE
  38. MORPHINE SULFATE [Concomitant]
     Active Substance: MORPHINE SULFATE
  39. MORPHINE SULFATE [Concomitant]
     Active Substance: MORPHINE SULFATE
  40. NABILONE [Concomitant]
     Active Substance: NABILONE
     Indication: Product used for unknown indication
     Dosage: 1 EVERY 1 DAYS;
     Route: 048
  41. NABILONE [Concomitant]
     Active Substance: NABILONE
  42. NABILONE [Concomitant]
     Active Substance: NABILONE
     Dosage: 1 EVERY 1 DAYS
  43. NABILONE [Concomitant]
     Active Substance: NABILONE
     Dosage: 25 MG, QD
  44. PHENAGLYCODOL [Concomitant]
     Active Substance: PHENAGLYCODOL
     Indication: Product used for unknown indication
  45. PHENAGLYCODOL [Concomitant]
     Active Substance: PHENAGLYCODOL
  46. PHENAGLYCODOL [Concomitant]
     Active Substance: PHENAGLYCODOL
  47. PHENAGLYCODOL [Concomitant]
     Active Substance: PHENAGLYCODOL
  48. PHENAGLYCODOL [Concomitant]
     Active Substance: PHENAGLYCODOL
  49. PHENAGLYCODOL [Concomitant]
     Active Substance: PHENAGLYCODOL
  50. SIMPONI [Concomitant]
     Active Substance: GOLIMUMAB
     Indication: Product used for unknown indication
     Route: 050
  51. SIMPONI [Concomitant]
     Active Substance: GOLIMUMAB
     Route: 058
  52. SIMPONI [Concomitant]
     Active Substance: GOLIMUMAB
  53. SIMPONI [Concomitant]
     Active Substance: GOLIMUMAB
     Route: 058
  54. SIMPONI [Concomitant]
     Active Substance: GOLIMUMAB
     Route: 050
  55. FENTANYL [Suspect]
     Active Substance: FENTANYL
     Indication: Product used for unknown indication
  56. VOLTAREN [Suspect]
     Active Substance: DICLOFENAC SODIUM
     Indication: Product used for unknown indication
  57. VOLTAREN [Suspect]
     Active Substance: DICLOFENAC SODIUM
     Dosage: 2 DOSAGE FORM, QD
     Route: 050
  58. VOLTAREN [Suspect]
     Active Substance: DICLOFENAC SODIUM
  59. VOLTAREN [Suspect]
     Active Substance: DICLOFENAC SODIUM
     Dosage: UNK, Q12H
  60. PREDNISONE [Concomitant]
     Active Substance: PREDNISONE
     Indication: Product used for unknown indication
  61. PREDNISONE [Concomitant]
     Active Substance: PREDNISONE
  62. PREDNISONE [Concomitant]
     Active Substance: PREDNISONE
  63. PREDNISONE [Concomitant]
     Active Substance: PREDNISONE
  64. FENTANYL [Suspect]
     Active Substance: FENTANYL
     Indication: Product used for unknown indication
  65. FENTANYL [Suspect]
     Active Substance: FENTANYL
  66. FENTANYL [Suspect]
     Active Substance: FENTANYL
     Route: 050
  67. COSENTYX [Suspect]
     Active Substance: SECUKINUMAB
     Indication: Ankylosing spondylitis
  68. COSENTYX [Suspect]
     Active Substance: SECUKINUMAB
     Route: 050
  69. COSENTYX [Suspect]
     Active Substance: SECUKINUMAB
     Route: 050
  70. COSENTYX [Suspect]
     Active Substance: SECUKINUMAB
     Route: 050
  71. COSENTYX [Suspect]
     Active Substance: SECUKINUMAB
     Route: 050
  72. COSENTYX [Suspect]
     Active Substance: SECUKINUMAB
     Dosage: 150 MG, QW
     Route: 050
  73. DICLOFENAC SODIUM [Suspect]
     Active Substance: DICLOFENAC SODIUM
     Indication: Product used for unknown indication
     Dosage: 2 DOSAGE FORM, QD
     Route: 050
  74. HUMIRA [Concomitant]
     Active Substance: ADALIMUMAB
     Indication: Product used for unknown indication
     Route: 050
  75. HUMIRA [Concomitant]
     Active Substance: ADALIMUMAB
     Route: 050

REACTIONS (32)
  - Kidney infection [Not Recovered/Not Resolved]
  - Cardiac disorder [Not Recovered/Not Resolved]
  - Back pain [Not Recovered/Not Resolved]
  - Asthenia [Not Recovered/Not Resolved]
  - Dizziness [Not Recovered/Not Resolved]
  - Abdominal pain upper [Not Recovered/Not Resolved]
  - Drug ineffective [Not Recovered/Not Resolved]
  - Arthralgia [Not Recovered/Not Resolved]
  - Burning sensation [Not Recovered/Not Resolved]
  - Diarrhoea [Not Recovered/Not Resolved]
  - Dry eye [Not Recovered/Not Resolved]
  - Oral herpes [Not Recovered/Not Resolved]
  - Pain [Not Recovered/Not Resolved]
  - Pelvic pain [Not Recovered/Not Resolved]
  - Pruritus [Not Recovered/Not Resolved]
  - Terminal insomnia [Not Recovered/Not Resolved]
  - Fatigue [Not Recovered/Not Resolved]
  - Feeling hot [Not Recovered/Not Resolved]
  - Headache [Not Recovered/Not Resolved]
  - Hypersensitivity [Not Recovered/Not Resolved]
  - Hypotension [Not Recovered/Not Resolved]
  - Injection site erythema [Not Recovered/Not Resolved]
  - Injection site mass [Not Recovered/Not Resolved]
  - Injection site reaction [Not Recovered/Not Resolved]
  - Injection site warmth [Not Recovered/Not Resolved]
  - Joint swelling [Not Recovered/Not Resolved]
  - Malaise [Not Recovered/Not Resolved]
  - Muscle spasms [Not Recovered/Not Resolved]
  - Musculoskeletal pain [Not Recovered/Not Resolved]
  - Musculoskeletal stiffness [Not Recovered/Not Resolved]
  - Neck pain [Not Recovered/Not Resolved]
  - Ocular hyperaemia [Not Recovered/Not Resolved]
